FAERS Safety Report 9115025 (Version 1)
Quarter: 2013Q1

REPORT INFORMATION
  Report Type: Spontaneous
  Country: JP (occurrence: JP)
  Receive Date: 20130128
  Receipt Date: 20130128
  Transmission Date: 20140127
  Serious: Yes (Other)
  Sender: FDA-Public Use
  Company Number: JP-ELI_LILLY_AND_COMPANY-JP201301005395

PATIENT
  Age: 83 Year
  Sex: Female

DRUGS (1)
  1. FORTEO [Suspect]
     Dosage: UNK
     Route: 058
     Dates: start: 201104

REACTIONS (5)
  - Lumbar vertebral fracture [Unknown]
  - Spinal fracture [Unknown]
  - Femur fracture [Unknown]
  - Bone density decreased [Unknown]
  - Back pain [Not Recovered/Not Resolved]
